FAERS Safety Report 24826702 (Version 1)
Quarter: 2025Q1

REPORT INFORMATION
  Report Type: Spontaneous
  Country: US (occurrence: US)
  Receive Date: 20250109
  Receipt Date: 20250109
  Transmission Date: 20250408
  Serious: No
  Sender: COOPERSURGICAL
  Company Number: US-COOPERSURGICAL, INC.-US-2024CPS000433

PATIENT
  Age: 25 Year
  Sex: Female

DRUGS (1)
  1. PARAGARD T 380A [Suspect]
     Active Substance: COPPER
     Indication: Product used for unknown indication
     Route: 015

REACTIONS (10)
  - Depressed mood [Unknown]
  - Anxiety [Unknown]
  - Irritability [Unknown]
  - Peripheral coldness [Unknown]
  - Asthenia [Unknown]
  - Headache [Unknown]
  - Heavy menstrual bleeding [Unknown]
  - Nausea [Unknown]
  - Muscle spasms [Unknown]
  - Back pain [Unknown]
